FAERS Safety Report 5220219-X (Version None)
Quarter: 2007Q1

REPORT INFORMATION
  Report Type: 
  Country: None (occurrence: None)
  Receive Date: 20061208
  Receipt Date: 20060602
  Transmission Date: 20070707
  Serious: Yes (Other)
  Sender: FDA-Public Use
  Company Number: 2006071372

PATIENT
  Age: 77 Year
  Sex: Male
  Weight: 81.6475 kg

DRUGS (6)
  1. VIAGRA [Suspect]
     Indication: ERECTILE DYSFUNCTION
     Dosage: (100 MG), ORAL
     Route: 048
     Dates: start: 19920101
  2. ACETYLSALICYLIC ACID (ACETYSALICYLIC ACID) [Suspect]
     Indication: MYOCARDIAL INFARCTION
     Dates: start: 20041101
  3. BILBERRY (MYRTILLUS) [Concomitant]
  4. SAW PALMETTO (SAW PALMETTO) [Concomitant]
  5. PRAVACHOL [Suspect]
     Indication: MYOCARDIAL INFARCTION
     Dates: start: 20041101
  6. TOPROL-XL [Suspect]
     Indication: MYOCARDIAL INFARCTION
     Dates: start: 20041101

REACTIONS (3)
  - DRUG EFFECT DECREASED [None]
  - DRUG INTERACTION [None]
  - MYOCARDIAL INFARCTION [None]
